FAERS Safety Report 8454792-5 (Version None)
Quarter: 2012Q2

REPORT INFORMATION
  Report Type: 
  Country: None (occurrence: None)
  Receive Date: 20120621
  Receipt Date: 20120615
  Transmission Date: 20120825
  Serious: Yes (Other)
  Sender: FDA-Public Use
  Company Number: US-JNJFOC-20120308207

PATIENT
  Sex: Male
  Weight: 24.04 kg

DRUGS (4)
  1. RISPERDAL [Suspect]
     Indication: AUTISM
     Route: 048
     Dates: start: 20080101, end: 20111201
  2. RISPERDAL [Suspect]
     Indication: ATTENTION DEFICIT/HYPERACTIVITY DISORDER
     Route: 048
     Dates: start: 20080101, end: 20111201
  3. RISPERDAL [Suspect]
     Indication: IRRITABILITY
     Route: 048
     Dates: start: 20080101, end: 20111201
  4. RISPERDAL [Suspect]
     Indication: AGGRESSION
     Route: 048
     Dates: start: 20080101, end: 20111201

REACTIONS (4)
  - GYNAECOMASTIA [None]
  - WEIGHT INCREASED [None]
  - BONE DENSITY DECREASED [None]
  - DYSKINESIA [None]
